FAERS Safety Report 9665508 (Version 2)
Quarter: 2014Q1

REPORT INFORMATION
  Report Type: Spontaneous
  Country: US (occurrence: US)
  Receive Date: 20131104
  Receipt Date: 20140221
  Transmission Date: 20141002
  Serious: No
  Sender: FDA-Public Use
  Company Number: US-PFIZER INC-2013313142

PATIENT
  Age: 62 Year
  Sex: Female

DRUGS (5)
  1. LYRICA [Suspect]
     Indication: PAIN
     Dosage: 75 MG, 1X/DAY
     Route: 048
     Dates: start: 20130315
  2. LYRICA [Suspect]
     Indication: NEUROPATHY PERIPHERAL
  3. METFORMIN [Concomitant]
     Dosage: 1000 MG, 2X/DAY
  4. GLIPIZIDE [Concomitant]
     Dosage: 10 MG, DAILY
  5. NTG [Concomitant]
     Dosage: 0.4 MG, AS NEEDED

REACTIONS (2)
  - Drug ineffective [Unknown]
  - Pain [Recovered/Resolved]
